FAERS Safety Report 13742586 (Version 1)
Quarter: 2017Q3

REPORT INFORMATION
  Report Type: Spontaneous
  Country: JP (occurrence: JP)
  Receive Date: 20170711
  Receipt Date: 20170711
  Transmission Date: 20171127
  Serious: Yes (Other)
  Sender: FDA-Public Use
  Company Number: PHHY2011JP104023

PATIENT
  Age: 71 Year
  Sex: Female

DRUGS (2)
  1. TIMOLOL MALEATE (RYSMON TG) [Suspect]
     Active Substance: TIMOLOL MALEATE
     Indication: GLAUCOMA
     Dosage: 2 DRP, QD
     Route: 047
     Dates: start: 200411
  2. MIKELAN LA 2% [Suspect]
     Active Substance: CARTEOLOL HYDROCHLORIDE
     Indication: GLAUCOMA
     Dosage: 2 DRP, QD
     Route: 047
     Dates: start: 200708

REACTIONS (1)
  - Macular oedema [Not Recovered/Not Resolved]
